FAERS Safety Report 26129066 (Version 5)
Quarter: 2025Q4

REPORT INFORMATION
  Report Type: Report from Study
  Country: US (occurrence: US)
  Receive Date: 20251208
  Receipt Date: 20251224
  Transmission Date: 20260118
  Serious: No
  Sender: SANDOZ
  Company Number: US-SANDOZ-SDZ2025US091727

PATIENT
  Age: 0 Year
  Sex: Male

DRUGS (2)
  1. OMNITROPE [Suspect]
     Active Substance: SOMATROPIN
     Indication: Noonan syndrome
     Dosage: 0.2 MG, QD
     Dates: start: 20251201
  2. OMNITROPE [Suspect]
     Active Substance: SOMATROPIN
     Indication: Short stature
     Dosage: 0.2 MG, QD

REACTIONS (7)
  - Injection site bruising [Not Recovered/Not Resolved]
  - Injection site haemorrhage [Recovered/Resolved]
  - Incorrect dose administered by device [Unknown]
  - Accidental exposure to product [Unknown]
  - Underdose [Unknown]
  - Circumstance or information capable of leading to medication error [Unknown]
  - Device leakage [Unknown]

NARRATIVE: CASE EVENT DATE: 20251201
